FAERS Safety Report 9957165 (Version 1)
Quarter: 2014Q1

REPORT INFORMATION
  Report Type: Report from Study
  Country: US (occurrence: US)
  Receive Date: 20140304
  Receipt Date: 20140304
  Transmission Date: 20141002
  Serious: No
  Sender: FDA-Public Use
  Company Number: US-ABBVIE-13P-163-1096540-00

PATIENT
  Age: 59 Year
  Sex: Male

DRUGS (8)
  1. HUMIRA [Suspect]
     Indication: PSORIASIS
     Dates: start: 201303, end: 201303
  2. HUMIRA [Suspect]
     Dosage: 1 WEEK AFTER INITIAL DOSE
  3. HUMIRA [Suspect]
     Dates: end: 20130507
  4. LANTUS [Concomitant]
     Indication: DIABETES MELLITUS
     Route: 050
  5. ACTOS [Concomitant]
     Indication: DIABETES MELLITUS
  6. GLYPRIDE [Concomitant]
     Indication: DIABETES MELLITUS
  7. BENICAR [Concomitant]
     Indication: BLOOD PRESSURE
  8. STEROIDS [Concomitant]
     Indication: PSORIASIS
     Route: 061

REACTIONS (1)
  - Herpes zoster [Recovering/Resolving]
